FAERS Safety Report 24675129 (Version 1)
Quarter: 2024Q4

REPORT INFORMATION
  Report Type: Spontaneous
  Country: FR (occurrence: FR)
  Receive Date: 20241128
  Receipt Date: 20241128
  Transmission Date: 20250115
  Serious: Yes (Hospitalization)
  Sender: AMGEN
  Company Number: FR-ROCHE-3565785

PATIENT
  Age: 82 Year
  Sex: Male
  Weight: 58 kg

DRUGS (30)
  1. BEVACIZUMAB [Suspect]
     Active Substance: BEVACIZUMAB
     Indication: Hepatocellular carcinoma
     Dosage: 865 MILLIGRAM, Q3WK
     Route: 040
     Dates: start: 20240229
  2. BEVACIZUMAB [Suspect]
     Active Substance: BEVACIZUMAB
     Dosage: 865 MILLIGRAM, Q3WK
     Route: 040
     Dates: end: 20240321
  3. TIRAGOLUMAB [Suspect]
     Active Substance: TIRAGOLUMAB
     Indication: Hepatocellular carcinoma
     Dosage: Q3WK (ON 21/MAR/2024 HE RECEIVED MOST RECENT DOSE OF BLINDED TIRAGOLUMAB PRIOR TO AE.ON 02/MAY/2024
     Route: 040
     Dates: start: 20240229
  4. TIRAGOLUMAB [Suspect]
     Active Substance: TIRAGOLUMAB
     Dosage: UNK
     Route: 040
  5. ATEZOLIZUMAB [Suspect]
     Active Substance: ATEZOLIZUMAB
     Indication: Hepatocellular carcinoma
     Dosage: 1200 MILLIGRAM, Q3WK (ON 21/MAR/2024 HE RECEIVED MOST RECENT DOSE OF ATEZOLIZUMAB (1200 MG) PRIOR TO
     Route: 040
     Dates: start: 20240229
  6. KARDEGIC [Concomitant]
     Active Substance: ASPIRIN DL-LYSINE
     Indication: Arteriosclerosis
     Dosage: 75 MILLIGRAM, QD
     Route: 048
     Dates: start: 2012, end: 20240603
  7. LANTUS [Concomitant]
     Active Substance: INSULIN GLARGINE
     Indication: Diabetes mellitus
     Dosage: 30 INTERNATIONAL UNIT, QD
     Route: 058
     Dates: start: 2004, end: 20240522
  8. GLIMEPIRIDE [Concomitant]
     Active Substance: GLIMEPIRIDE
     Indication: Diabetes mellitus
     Dosage: 6 MILLIGRAM, QD
     Route: 049
     Dates: start: 2023, end: 20240522
  9. DAPAGLIFLOZIN [Concomitant]
     Active Substance: DAPAGLIFLOZIN
     Indication: Diabetes mellitus
     Dosage: 10 MILLIGRAM, QD
     Route: 048
     Dates: start: 2023, end: 20240522
  10. VALSARTAN [Concomitant]
     Active Substance: VALSARTAN
     Indication: Hypertension
     Dosage: 160 MILLIGRAM, QD
     Route: 048
     Dates: start: 2017, end: 20240530
  11. HYDROCHLOROTHIAZIDE\VALSARTAN [Concomitant]
     Active Substance: HYDROCHLOROTHIAZIDE\VALSARTAN
     Dosage: 160 MILLIGRAM, QD
     Route: 048
     Dates: start: 20240221
  12. JANUVIA [Concomitant]
     Active Substance: SITAGLIPTIN PHOSPHATE
     Indication: Diabetes mellitus
     Dosage: 100 MILLIGRAM, QD
     Route: 048
     Dates: start: 2022, end: 20240522
  13. LYRICA [Concomitant]
     Active Substance: PREGABALIN
     Indication: Diabetic neuropathy
     Dosage: 150 MILLIGRAM, QD
     Route: 048
     Dates: start: 2018, end: 20240529
  14. HYALURONATE SODIUM\TREHALOSE [Concomitant]
     Active Substance: HYALURONATE SODIUM\TREHALOSE
     Indication: Glaucoma
     Dosage: 1 OTHER
     Route: 047
     Dates: start: 2022, end: 20240522
  15. BIMATOPROST\TIMOLOL [Concomitant]
     Active Substance: BIMATOPROST\TIMOLOL
     Indication: Glaucoma
     Dosage: 1 OTHER
     Route: 047
     Dates: start: 2022, end: 20240522
  16. BRINZOLAMIDE [Concomitant]
     Active Substance: BRINZOLAMIDE
     Indication: Glaucoma
     Dosage: 1 OTHER
     Route: 047
     Dates: start: 2022, end: 20240522
  17. MORPHINE SULFATE [Concomitant]
     Active Substance: MORPHINE SULFATE
     Indication: Cancer pain
     Dosage: 10 MILLIGRAM
     Route: 048
     Dates: start: 202312, end: 20240603
  18. SKENAN [Concomitant]
     Active Substance: MORPHINE SULFATE
     Indication: Cancer pain
     Dosage: 30 MILLIGRAM
     Route: 048
     Dates: start: 20240112, end: 20240602
  19. AMLODIPINE [Concomitant]
     Active Substance: AMLODIPINE BESYLATE
     Indication: Hypertension
     Dosage: 5 MILLIGRAM
     Route: 048
     Dates: start: 20240229, end: 20240229
  20. AMLODIPINE [Concomitant]
     Active Substance: AMLODIPINE BESYLATE
     Dosage: 10 MILLIGRAM, QD
     Route: 048
     Dates: start: 20240322, end: 20240531
  21. CARVEDILOL [Concomitant]
     Active Substance: CARVEDILOL
     Indication: Portal hypertension
     Dosage: 6.25 MILLIGRAM (0.5 DAY)
     Route: 048
     Dates: start: 20240209, end: 20240531
  22. NOVORAPID [Concomitant]
     Active Substance: INSULIN ASPART
     Indication: Diabetes mellitus
     Dosage: UNK
     Route: 058
     Dates: start: 20240522, end: 20240603
  23. MORPHINE HYDROCHLORIDE [Concomitant]
     Active Substance: MORPHINE HYDROCHLORIDE
     Indication: Pain
     Dosage: 24 MILLIGRAM, QD
     Route: 040
     Dates: start: 20240531, end: 20240602
  24. MORPHINE HYDROCHLORIDE [Concomitant]
     Active Substance: MORPHINE HYDROCHLORIDE
     Dosage: 36 MILLIGRAM, QD
     Route: 040
     Dates: start: 20240603, end: 20240603
  25. MORPHINE HYDROCHLORIDE [Concomitant]
     Active Substance: MORPHINE HYDROCHLORIDE
     Dosage: 2 MILLIGRAM (AS NECESSARY)
     Route: 040
     Dates: start: 20240530, end: 20240603
  26. MORPHINE HYDROCHLORIDE [Concomitant]
     Active Substance: MORPHINE HYDROCHLORIDE
     Dosage: 3 MILLIGRAM (AS NECESSARY)
     Route: 040
     Dates: start: 20240522, end: 20240523
  27. ENOXAPARIN [Concomitant]
     Active Substance: ENOXAPARIN
     Dosage: 4000 INTERNATIONAL UNIT, QD
     Route: 058
     Dates: start: 20240525, end: 20240602
  28. METHYLPREDNISOLONE [Concomitant]
     Active Substance: METHYLPREDNISOLONE
     Dosage: 60 MILLIGRAM, QD
     Route: 040
     Dates: start: 20240529, end: 20240603
  29. MIDAZOLAM [Concomitant]
     Active Substance: MIDAZOLAM
     Indication: Pain
     Dosage: 1 MILLIGRAM (AS NECESSARY)
     Route: 040
     Dates: start: 20240530, end: 20240603
  30. MIDAZOLAM [Concomitant]
     Active Substance: MIDAZOLAM
     Route: 040
     Dates: start: 20240530, end: 20240603

REACTIONS (3)
  - Osteolysis [Not Recovered/Not Resolved]
  - Infusion related reaction [Recovered/Resolved]
  - Off label use [Unknown]

NARRATIVE: CASE EVENT DATE: 20240229
